FAERS Safety Report 8333634-2 (Version None)
Quarter: 2012Q2

REPORT INFORMATION
  Report Type: 
  Country: None (occurrence: None)
  Receive Date: 20120503
  Receipt Date: 20101213
  Transmission Date: 20120825
  Serious: No
  Sender: FDA-Public Use
  Company Number: US-TEVA-2010006465

PATIENT
  Sex: Female
  Weight: 77.18 kg

DRUGS (7)
  1. IBUPROFEN [Concomitant]
     Dates: start: 20040101
  2. NUVIGIL [Suspect]
     Indication: SOMNOLENCE
     Dosage: 250 MILLIGRAM;
     Route: 048
     Dates: start: 20100815, end: 20100907
  3. TOPAMAX [Concomitant]
     Dates: start: 20060101
  4. COPAXONE [Concomitant]
     Dates: start: 20040101
  5. BACLOFEN [Concomitant]
     Dates: start: 20060101
  6. NEURONTIN [Concomitant]
     Dates: start: 20100601
  7. VITAMIN B-12 [Concomitant]
     Dates: start: 20090101

REACTIONS (3)
  - PALPITATIONS [None]
  - TACHYCARDIA [None]
  - BLOOD PRESSURE INCREASED [None]
